FAERS Safety Report 17896143 (Version 1)
Quarter: 2020Q2

REPORT INFORMATION
  Report Type: Spontaneous
  Country: CA (occurrence: CA)
  Receive Date: 20200615
  Receipt Date: 20200615
  Transmission Date: 20200714
  Serious: Yes (Death, Other)
  Sender: FDA-Public Use
  Company Number: CA-SHIRE-CA202016709

PATIENT

DRUGS (2)
  1. GAMMAGARD LIQUID [Suspect]
     Active Substance: HUMAN IMMUNOGLOBULIN G
     Indication: CARDIAC FAILURE CONGESTIVE
     Dosage: 12.5 GRAM
     Route: 065
     Dates: start: 1955, end: 2010
  2. GAMMAGARD LIQUID [Suspect]
     Active Substance: HUMAN IMMUNOGLOBULIN G
     Dosage: 20 GRAM
     Route: 065

REACTIONS (6)
  - Chills [Recovered/Resolved]
  - Body temperature increased [Recovered/Resolved]
  - Death [Fatal]
  - Blood pressure increased [Recovered/Resolved]
  - Intentional product use issue [Unknown]
  - Feeling cold [Recovered/Resolved]
